FAERS Safety Report 10774281 (Version 2)
Quarter: 2016Q1

REPORT INFORMATION
  Report Type: Spontaneous
  Country: US (occurrence: US)
  Receive Date: 20150209
  Receipt Date: 20160229
  Transmission Date: 20160525
  Serious: No
  Sender: FDA-Public Use
  Company Number: US-ACORDA-ACO_23058_2010

PATIENT
  Age: 43 Year
  Sex: Female
  Weight: 40 kg

DRUGS (5)
  1. AMPYRA [Suspect]
     Active Substance: DALFAMPRIDINE
     Indication: GAIT DISTURBANCE
     Dosage: 10 MG,BID
     Route: 048
     Dates: start: 20100524, end: 20100527
  2. NUVIGIL [Suspect]
     Active Substance: ARMODAFINIL
     Indication: FATIGUE
     Route: 048
     Dates: start: 2000
  3. ZOLOFT [Concomitant]
     Active Substance: SERTRALINE HYDROCHLORIDE
     Dates: start: 2005
  4. AMPYRA [Suspect]
     Active Substance: DALFAMPRIDINE
     Dosage: 10 MG, UNK
     Route: 048
     Dates: start: 20100609
  5. LISINOPRIL. [Concomitant]
     Active Substance: LISINOPRIL
     Indication: HYPERTENSION
     Dates: start: 2004

REACTIONS (10)
  - Muscular weakness [Recovered/Resolved]
  - Incorrect product storage [Unknown]
  - Drug ineffective [Recovered/Resolved]
  - Drug interaction [Unknown]
  - General physical health deterioration [Unknown]
  - Fall [Recovered/Resolved]
  - Drug effect decreased [Not Recovered/Not Resolved]
  - Condition aggravated [Recovered/Resolved]
  - Product quality issue [Recovered/Resolved]
  - Dizziness [Recovered/Resolved]

NARRATIVE: CASE EVENT DATE: 201005
